FAERS Safety Report 11688865 (Version 1)
Quarter: 2015Q4

REPORT INFORMATION
  Report Type: Spontaneous
  Country: US (occurrence: US)
  Receive Date: 20151102
  Receipt Date: 20151102
  Transmission Date: 20160304
  Serious: No
  Sender: FDA-Public Use
  Company Number: US-ASTRAZENECA-2015SF03137

PATIENT
  Sex: Female
  Weight: 79.4 kg

DRUGS (10)
  1. NASONEX [Concomitant]
     Active Substance: MOMETASONE FUROATE
  2. MAGNESIUM [Concomitant]
     Active Substance: MAGNESIUM
  3. RHINOCORT AQUA [Suspect]
     Active Substance: BUDESONIDE
     Indication: HYPERSENSITIVITY
     Dosage: 32 MCG 2 PUFFS,FREQUENCY UNKNOWN
     Route: 045
     Dates: start: 2008, end: 2009
  4. TAURINE [Concomitant]
     Active Substance: TAURINE
     Indication: ANXIETY
  5. RHINOCORT AQUA [Suspect]
     Active Substance: BUDESONIDE
     Indication: SINUSITIS
     Dosage: 32 MCG 2 PUFFS,FREQUENCY UNKNOWN
     Route: 045
     Dates: start: 2008, end: 2009
  6. METOPROLOL TARTRATE. [Concomitant]
     Active Substance: METOPROLOL TARTRATE
     Indication: CARDIAC DISORDER
     Route: 048
  7. VITAMINS NOS [Concomitant]
     Active Substance: VITAMINS
  8. AMINO ACIDS NOS [Concomitant]
  9. BABY ASPIRIN [Concomitant]
     Active Substance: ASPIRIN
  10. GABA [Concomitant]
     Active Substance: .GAMMA.-AMINOBUTYRIC ACID
     Indication: SLEEP DISORDER

REACTIONS (4)
  - Heart rate abnormal [Unknown]
  - Feeling abnormal [Unknown]
  - Anxiety [Unknown]
  - Malaise [Unknown]
